FAERS Safety Report 4507895-1 (Version None)
Quarter: 2004Q4

REPORT INFORMATION
  Report Type: 
  Country: None (occurrence: None)
  Receive Date: 20041123
  Receipt Date: 20021009
  Transmission Date: 20050328
  Serious: Yes (Death)
  Sender: FDA-Public Use
  Company Number: US-ROCHE-323228

PATIENT
  Age: 14 Year
  Sex: Male
  Weight: 65.8 kg

DRUGS (4)
  1. ACCUTANE [Suspect]
     Route: 048
     Dates: start: 20011206, end: 20020117
  2. ACCUTANE [Suspect]
     Route: 048
     Dates: start: 20020118, end: 20020515
  3. ATENDOL [Concomitant]
     Indication: COUGH
  4. TAZORAC [Concomitant]

REACTIONS (15)
  - AFFECT LABILITY [None]
  - ASTHENIA [None]
  - BLOOD CHOLESTEROL INCREASED [None]
  - BLOOD TRIGLYCERIDES INCREASED [None]
  - COMPLETED SUICIDE [None]
  - COUGH [None]
  - CRYING [None]
  - DEPENDENT PERSONALITY DISORDER [None]
  - DIZZINESS [None]
  - DRY SKIN [None]
  - DYSPNOEA [None]
  - HEADACHE [None]
  - LIP DRY [None]
  - PAIN [None]
  - POLYTRAUMATISM [None]
